FAERS Safety Report 7936100-9 (Version None)
Quarter: 2011Q4

REPORT INFORMATION
  Report Type: 
  Country: None (occurrence: None)
  Receive Date: 20111123
  Receipt Date: 20111118
  Transmission Date: 20120403
  Serious: Yes (Hospitalization, Other)
  Sender: FDA-Public Use
  Company Number: AU-BRISTOL-MYERS SQUIBB COMPANY-16017311

PATIENT
  Age: 65 Year
  Sex: Female

DRUGS (3)
  1. LASIX [Concomitant]
     Dosage: 80 MG MANE + MIDD DAY
     Dates: start: 20110815
  2. DASATINIB [Suspect]
     Indication: CHRONIC MYELOID LEUKAEMIA
     Route: 048
     Dates: start: 20080221, end: 20110823
  3. AMILORIDE HYDROCHLORIDE [Concomitant]
     Dosage: MANE MIDDAY
     Dates: start: 20110815

REACTIONS (1)
  - HYPOXIA [None]
